FAERS Safety Report 14614023 (Version 22)
Quarter: 2018Q3

REPORT INFORMATION
  Report Type: Report from Study
  Country: JP (occurrence: JP)
  Receive Date: 20180308
  Receipt Date: 20180828
  Transmission Date: 20181010
  Serious: Yes (Life-Threatening, Hospitalization, Other)
  Sender: FDA-Public Use
  Company Number: JP-ALLERGAN-1812069US

PATIENT
  Age: 73 Year
  Sex: Female

DRUGS (51)
  1. CARBOCISTEINE [Suspect]
     Active Substance: CARBOCYSTEINE
     Indication: NASOPHARYNGITIS
     Dosage: 250 MG, TID
     Route: 048
     Dates: start: 20180221, end: 20180224
  2. NEXIUM [Concomitant]
     Active Substance: ESOMEPRAZOLE MAGNESIUM
     Indication: GASTRITIS PROPHYLAXIS
     Dosage: 10 MG, QD
     Route: 048
     Dates: start: 20180302
  3. ACTONEL [Concomitant]
     Active Substance: RISEDRONATE SODIUM
     Indication: OSTEOPOROSIS PROPHYLAXIS
     Dosage: 17.5 MG, Q WEEK
     Route: 048
     Dates: start: 20180308
  4. HUMALOG [Concomitant]
     Active Substance: INSULIN LISPRO
     Dosage: 4 UNITS, IF SUGAR BLOOD LEVEL 201?250 MG/DL
     Route: 065
  5. NOVOLIN R [Concomitant]
     Active Substance: INSULIN HUMAN
     Dosage: 2?8 UNITS, PRN
     Route: 058
     Dates: start: 20180312, end: 20180320
  6. PLETAAL [Concomitant]
     Active Substance: CILOSTAZOL
     Indication: BRAIN STEM INFARCTION
     Dosage: 100 MG, BID
     Route: 048
     Dates: start: 20180608
  7. FUROSEMIDE. [Concomitant]
     Active Substance: FUROSEMIDE
     Indication: PROPHYLAXIS
     Dosage: 20 MG, SINGLE
     Route: 042
     Dates: start: 20180713, end: 20180713
  8. FUROSEMIDE. [Concomitant]
     Active Substance: FUROSEMIDE
     Dosage: 20 MG, SINGLE
     Route: 042
     Dates: start: 20180810, end: 20180810
  9. BLINDED BOTULINUM TOXIN TYPE A ? GENERAL (9060X) [Suspect]
     Active Substance: BOTULINUM TOXIN TYPE A
     Dosage: UNK, SINGLE
     Route: 030
     Dates: start: 20171030, end: 20171030
  10. CALONAL [Suspect]
     Active Substance: ACETAMINOPHEN
     Indication: NASOPHARYNGITIS
     Dosage: 200 MG, TID
     Route: 048
     Dates: start: 20180221, end: 20180224
  11. CILOSTAZOL. [Concomitant]
     Active Substance: CILOSTAZOL
     Indication: BRAIN STEM INFARCTION
     Dosage: 100 MG, BID
     Route: 048
     Dates: start: 2012, end: 20171026
  12. NOVOLIN R [Concomitant]
     Active Substance: INSULIN HUMAN
     Indication: HYPERGLYCAEMIA
     Dosage: UNK
     Route: 058
     Dates: start: 20180613, end: 20180621
  13. NOVOLIN R [Concomitant]
     Active Substance: INSULIN HUMAN
     Dosage: 6 UNITS, IF SUGAR BLOOD LEVEL 251?300 MG/DL
     Route: 065
  14. PLETAAL [Concomitant]
     Active Substance: CILOSTAZOL
     Dosage: 100 MG, QD
     Route: 048
     Dates: start: 20180605, end: 20180607
  15. SOSEGON [Concomitant]
     Active Substance: PENTAZOCINE
     Indication: BRONCHOSCOPY
     Dosage: 15 ML, SINGLE
     Route: 042
     Dates: start: 20180604, end: 20180604
  16. CILOSTAZOL. [Concomitant]
     Active Substance: CILOSTAZOL
     Dosage: 100 MG, BID
     Route: 048
     Dates: start: 20180206, end: 20180301
  17. CRESTOR [Concomitant]
     Active Substance: ROSUVASTATIN CALCIUM
     Indication: HYPERLIPIDAEMIA
     Dosage: 2.5 MG, QD
     Route: 048
     Dates: start: 2012, end: 20180301
  18. BAKTAR [Concomitant]
     Active Substance: SULFAMETHOXAZOLE\TRIMETHOPRIM
     Indication: ANTIFUNGAL PROPHYLAXIS
     Dosage: 1 DF, QD
     Route: 048
     Dates: start: 20180308
  19. HUMALOG [Concomitant]
     Active Substance: INSULIN LISPRO
     Dosage: 2 UNITS, IF SUGAR BLOOD LEVEL 150?200 MG/DL
     Route: 065
  20. CROMOGLICATE SODIUM [Concomitant]
     Active Substance: CROMOLYN SODIUM
     Indication: BRONCHOSCOPY
     Dosage: 2 ML, SINGLE
     Route: 055
     Dates: start: 20180604, end: 20180604
  21. MEPTIN [Concomitant]
     Active Substance: PROCATEROL HYDROCHLORIDE
     Indication: BRONCHOSCOPY
     Dosage: .5 ML, SINGLE
     Route: 055
     Dates: start: 20180604, end: 20180604
  22. ATARAX?P [Concomitant]
     Active Substance: HYDROXYZINE HYDROCHLORIDE
     Indication: BRONCHOSCOPY
     Dosage: 25 ML, SINGLE
     Route: 042
     Dates: start: 20180604, end: 20180604
  23. CRESTOR [Concomitant]
     Active Substance: ROSUVASTATIN CALCIUM
     Dosage: 2.5 MG, QD
     Route: 048
     Dates: start: 20180413
  24. NOVOLIN R [Concomitant]
     Active Substance: INSULIN HUMAN
     Dosage: 2 UNITS, IF SUGAR BLOOD LEVEL 150?200 MG/DL
     Route: 065
  25. PLETAAL [Concomitant]
     Active Substance: CILOSTAZOL
     Dosage: 100 MG, BID
     Route: 048
     Dates: start: 2012, end: 20171026
  26. BLINDED BOTULINUM TOXIN TYPE A ? GENERAL (9060X) [Suspect]
     Active Substance: BOTULINUM TOXIN TYPE A
     Indication: HYPERTONIC BLADDER
     Dosage: UNK, SINGLE
     Route: 030
     Dates: start: 20180205, end: 20180205
  27. BLINDED PLACEBO [Suspect]
     Active Substance: INVESTIGATIONAL PRODUCT
     Dosage: UNK, SINGLE
     Route: 030
     Dates: start: 20171030, end: 20171030
  28. CILOSTAZOL. [Concomitant]
     Active Substance: CILOSTAZOL
     Dosage: 100 MG, BID
     Route: 048
     Dates: start: 20171031, end: 20180201
  29. CILOSTAZOL. [Concomitant]
     Active Substance: CILOSTAZOL
     Dosage: 100 MG, BID
     Route: 048
     Dates: start: 20180605, end: 20180607
  30. ZITHROMAC [Concomitant]
     Active Substance: AZITHROMYCIN DIHYDRATE
     Indication: ATYPICAL PNEUMONIA
     Dosage: 2 G, SINGLE
     Route: 048
     Dates: start: 20180710, end: 20180710
  31. HUSTAZOL [Suspect]
     Active Substance: CLOPERASTINE
     Indication: NASOPHARYNGITIS
     Dosage: 20 MG, TID
     Route: 048
     Dates: start: 20180221, end: 20180224
  32. CLARITH [Suspect]
     Active Substance: CLARITHROMYCIN
     Indication: NASOPHARYNGITIS
     Dosage: 200 MG, BID
     Route: 048
     Dates: start: 20180221, end: 20180224
  33. CILOSTAZOL. [Concomitant]
     Active Substance: CILOSTAZOL
     Dosage: 100 MG, BID
     Route: 048
     Dates: start: 20180320, end: 20180531
  34. OLMETEC [Concomitant]
     Active Substance: OLMESARTAN MEDOXOMIL
     Indication: HYPERTENSION
     Dosage: 20 MG, QD
     Route: 048
     Dates: start: 2012, end: 20180221
  35. PLETAAL [Concomitant]
     Active Substance: CILOSTAZOL
     Dosage: 100 MG, BID
     Route: 048
     Dates: start: 20171031, end: 20180201
  36. OLMESARTAN MEDOXOMIL. [Concomitant]
     Active Substance: OLMESARTAN MEDOXOMIL
     Indication: HYPERTENSION
     Dosage: 20 MG, QD
     Route: 048
     Dates: start: 20180302
  37. BLINDED PLACEBO [Suspect]
     Active Substance: INVESTIGATIONAL PRODUCT
     Indication: HYPERTONIC BLADDER
     Dosage: UNK, SINGLE
     Route: 030
     Dates: start: 20180205, end: 20180205
  38. TAMIFLU [Suspect]
     Active Substance: OSELTAMIVIR PHOSPHATE
     Indication: INFLUENZA
     Dosage: 75 MG, BID
     Route: 048
     Dates: start: 20180221, end: 20180224
  39. CLARITIN [Concomitant]
     Active Substance: LORATADINE
     Indication: SEASONAL ALLERGY
     Dosage: 10 MG, QD
     Route: 048
     Dates: start: 20180223, end: 20180223
  40. HUMALOG [Concomitant]
     Active Substance: INSULIN LISPRO
     Indication: HYPERGLYCAEMIA
     Dosage: 2?8 UNITS, PRN
     Route: 058
     Dates: start: 20180307, end: 20180311
  41. NOVOLIN R [Concomitant]
     Active Substance: INSULIN HUMAN
     Dosage: 4 UNITS, IF SUGAR BLOOD LEVEL 201?250 MG/DL
     Route: 065
  42. LOCOID [Concomitant]
     Active Substance: HYDROCORTISONE BUTYRATE
     Indication: ARTHROPOD STING
     Dosage: 5 G, PRN
     Route: 061
     Dates: start: 20180531, end: 20180606
  43. PLETAAL [Concomitant]
     Active Substance: CILOSTAZOL
     Dosage: 100 MG, BID
     Route: 048
     Dates: start: 20180320, end: 20180331
  44. KYTRIL [Concomitant]
     Active Substance: GRANISETRON HYDROCHLORIDE
     Dosage: 3 MG, SINGLE
     Route: 042
     Dates: start: 20180810, end: 20180810
  45. BIOFERMIN R [Suspect]
     Active Substance: BACILLUS SUBTILIS\LACTOBACILLUS ACIDOPHILUS\STREPTOCOCCUS FAECAIS
     Indication: PROPHYLAXIS AGAINST DIARRHOEA
     Dosage: 1 G, TID
     Route: 048
     Dates: start: 20180221, end: 20180224
  46. HUMALOG [Concomitant]
     Active Substance: INSULIN LISPRO
     Dosage: 6 UNITS, IF SUGAR BLOOD LEVEL 251?300 MG/DL
     Route: 065
  47. HUMALOG [Concomitant]
     Active Substance: INSULIN LISPRO
     Dosage: 8 UNITS, IF SUGAR BLOOD LEVEL 301?350 MG/DL
     Route: 065
  48. NOVOLIN R [Concomitant]
     Active Substance: INSULIN HUMAN
     Dosage: 6 UNITS, IF SUGAR BLOOD LEVEL 301?350 MG/DL
     Route: 065
  49. LIDOCAINE HYDROCHLORIDE. [Concomitant]
     Active Substance: LIDOCAINE HYDROCHLORIDE
     Indication: BRONCHOSCOPY
     Dosage: 5 ML, SINGLE
     Route: 055
     Dates: start: 20180604, end: 20180604
  50. JANUVIA [Concomitant]
     Active Substance: SITAGLIPTIN PHOSPHATE
     Indication: HYPERGLYCAEMIA
     Dosage: 50 MG, QD
     Route: 048
     Dates: start: 20180706
  51. KYTRIL [Concomitant]
     Active Substance: GRANISETRON HYDROCHLORIDE
     Indication: PROPHYLAXIS OF NAUSEA AND VOMITING
     Dosage: 3 MG, SINGLE
     Route: 042
     Dates: start: 20180713, end: 20180713

REACTIONS (1)
  - Interstitial lung disease [Not Recovered/Not Resolved]

NARRATIVE: CASE EVENT DATE: 20180301
